FAERS Safety Report 9418733 (Version 2)
Quarter: 2013Q3

REPORT INFORMATION
  Report Type: Spontaneous
  Country: US (occurrence: US)
  Receive Date: 20130725
  Receipt Date: 20130730
  Transmission Date: 20140515
  Serious: No
  Sender: FDA-Public Use
  Company Number: US-PFIZER INC-2013213109

PATIENT
  Age: 5 Year
  Sex: Male

DRUGS (1)
  1. EPIPEN [Suspect]
     Dosage: UNK

REACTIONS (3)
  - Accidental exposure to product by child [Unknown]
  - Expired drug administered [Unknown]
  - Nervousness [Unknown]
